FAERS Safety Report 8181649-X (Version None)
Quarter: 2012Q1

REPORT INFORMATION
  Report Type: 
  Country: None (occurrence: None)
  Receive Date: 20120302
  Receipt Date: 20110517
  Transmission Date: 20120608
  Serious: Yes (Hospitalization, Other)
  Sender: FDA-Public Use
  Company Number: BR-US-EMD SERONO, INC.-7040653

PATIENT
  Sex: Female

DRUGS (5)
  1. TOPIRAMATE [Concomitant]
  2. MANTIDAN [Concomitant]
  3. CITTA [Suspect]
     Indication: PRODUCT USED FOR UNKNOWN INDICATION
     Dates: start: 20090101
  4. REBIF [Suspect]
     Indication: PRIMARY PROGRESSIVE MULTIPLE SCLEROSIS
     Dates: start: 20090729
  5. IBUPROFEN TABLETS [Concomitant]

REACTIONS (15)
  - ARTHRALGIA [None]
  - INJECTION SITE NODULE [None]
  - DYSPNOEA [None]
  - HEADACHE [None]
  - BALANCE DISORDER [None]
  - NERVOUSNESS [None]
  - PYREXIA [None]
  - PARAESTHESIA [None]
  - MALAISE [None]
  - OFF LABEL USE [None]
  - WEIGHT INCREASED [None]
  - DYSSTASIA [None]
  - URINARY INCONTINENCE [None]
  - ASTHENIA [None]
  - INFLUENZA LIKE ILLNESS [None]
